FAERS Safety Report 11677258 (Version 5)
Quarter: 2018Q4

REPORT INFORMATION
  Report Type: Spontaneous
  Country: US (occurrence: US)
  Receive Date: 20151028
  Receipt Date: 20181015
  Transmission Date: 20190204
  Serious: Yes (Hospitalization)
  Sender: FDA-Public Use
  Company Number: US-DSJP-DSU-2015-132122

PATIENT

DRUGS (3)
  1. IMODIUM AD [Concomitant]
     Active Substance: LOPERAMIDE HYDROCHLORIDE
     Indication: DIARRHOEA
     Dosage: 2 MG TAB, 2 TABS QID PRN
  2. BENICAR [Suspect]
     Active Substance: OLMESARTAN MEDOXOMIL
     Indication: HYPERTENSION
     Dosage: 40 MG, QD
  3. BENICAR HCT [Suspect]
     Active Substance: HYDROCHLOROTHIAZIDE\OLMESARTAN MEDOXOMIL
     Indication: HYPERTENSION
     Dosage: 40/12.5MG
     Route: 048
     Dates: start: 201008, end: 201407

REACTIONS (4)
  - Sprue-like enteropathy [Recovered/Resolved]
  - Gluten sensitivity [Unknown]
  - Syncope [Unknown]
  - Abdominal lymphadenopathy [Unknown]

NARRATIVE: CASE EVENT DATE: 201301
